FAERS Safety Report 5316449-9 (Version None)
Quarter: 2007Q2

REPORT INFORMATION
  Report Type: 
  Country: None (occurrence: None)
  Receive Date: 20070504
  Receipt Date: 20070425
  Transmission Date: 20071010
  Serious: Yes (Other)
  Sender: FDA-Public Use
  Company Number: PHEH2007US06257

PATIENT
  Sex: Female

DRUGS (1)
  1. ZELNORM [Suspect]
     Route: 048
     Dates: start: 20050101

REACTIONS (4)
  - CARDIAC DISORDER [None]
  - DYSPNOEA [None]
  - PALPITATIONS [None]
  - RESPIRATORY THERAPY [None]
